FAERS Safety Report 12261167 (Version 5)
Quarter: 2016Q4

REPORT INFORMATION
  Report Type: Spontaneous
  Country: US (occurrence: US)
  Receive Date: 20160412
  Receipt Date: 20161219
  Transmission Date: 20170207
  Serious: No
  Sender: FDA-Public Use
  Company Number: US-INCYTE CORPORATION-2016IN001101

PATIENT
  Sex: Female

DRUGS (5)
  1. JAKAFI [Suspect]
     Active Substance: RUXOLITINIB
     Dosage: 20 MG, BID
     Route: 048
     Dates: start: 20160101
  2. JAKAFI [Suspect]
     Active Substance: RUXOLITINIB
     Dosage: 15 MG, BID
     Route: 048
     Dates: start: 20160101
  3. JAKAFI [Suspect]
     Active Substance: RUXOLITINIB
     Dosage: 15 MG, QD
     Route: 048
     Dates: start: 20150101
  4. JAKAFI [Suspect]
     Active Substance: RUXOLITINIB
     Dosage: 15 MG, BID
     Route: 048
     Dates: start: 20151230
  5. JAKAFI [Suspect]
     Active Substance: RUXOLITINIB
     Dosage: 10 MG, BID
     Route: 048
     Dates: start: 20160130

REACTIONS (14)
  - Ageusia [Unknown]
  - Dry mouth [Unknown]
  - Weight increased [Unknown]
  - Gastritis [Unknown]
  - Vision blurred [Unknown]
  - Bladder pain [Unknown]
  - Peripheral swelling [Unknown]
  - Constipation [Unknown]
  - Abdominal distension [Unknown]
  - Platelet count increased [Unknown]
  - Nausea [Unknown]
  - Splenitis [Unknown]
  - Decreased appetite [Unknown]
  - Dizziness [Unknown]
